FAERS Safety Report 18543054 (Version 1)
Quarter: 2020Q4

REPORT INFORMATION
  Report Type: Spontaneous
  Country: FR (occurrence: FR)
  Receive Date: 20201125
  Receipt Date: 20201125
  Transmission Date: 20210114
  Serious: Yes (Hospitalization, Other)
  Sender: FDA-Public Use
  Company Number: FR-AUROBINDO-AUR-APL-2020-057651

PATIENT
  Age: 65 Year
  Sex: Male

DRUGS (2)
  1. DEPAKOTE [Suspect]
     Active Substance: DIVALPROEX SODIUM
     Indication: BIPOLAR DISORDER
     Dosage: 1500 MILLIGRAM
     Route: 048
     Dates: start: 201909
  2. AMIODARONE [Suspect]
     Active Substance: AMIODARONE
     Indication: ATRIAL FIBRILLATION
     Dosage: UNK
     Route: 048
     Dates: start: 202008

REACTIONS (2)
  - Pericarditis [Not Recovered/Not Resolved]
  - Pleurisy [Not Recovered/Not Resolved]

NARRATIVE: CASE EVENT DATE: 202009
